FAERS Safety Report 7017981-2 (Version None)
Quarter: 2010Q3

REPORT INFORMATION
  Report Type: 
  Country: None (occurrence: None)
  Receive Date: 20100923
  Receipt Date: 20100914
  Transmission Date: 20110219
  Serious: Yes (Disabling)
  Sender: FDA-Public Use
  Company Number: 2010US003217

PATIENT
  Age: 10 Week
  Sex: Female
  Weight: 3 kg

DRUGS (10)
  1. AMBISOME [Suspect]
     Indication: ANTIFUNGAL TREATMENT
     Dosage: 5 MG/KG, IV NOS
     Route: 042
     Dates: end: 20100601
  2. MIDAZOLAM HCL [Concomitant]
  3. FENTANYL-100 [Concomitant]
  4. KETAMINE HCL [Concomitant]
  5. RANITIDINE [Concomitant]
  6. LASIX [Concomitant]
  7. SPIRONOLACTONE [Concomitant]
  8. CAPTOPRIL [Concomitant]
  9. DIGOXIN [Concomitant]
  10. AMIODARONE HCL [Concomitant]

REACTIONS (1)
  - VENTRICULAR TACHYCARDIA [None]
